FAERS Safety Report 25167041 (Version 2)
Quarter: 2025Q2

REPORT INFORMATION
  Report Type: Report from Study
  Country: IE (occurrence: IE)
  Receive Date: 20250407
  Receipt Date: 20250428
  Transmission Date: 20250716
  Serious: Yes (Other)
  Sender: NOVARTIS
  Company Number: IE-002147023-NVSC2025IE055930

PATIENT
  Age: 49 Year
  Sex: Female

DRUGS (2)
  1. COSENTYX [Suspect]
     Active Substance: SECUKINUMAB
     Indication: Psoriasis
     Dosage: 300 MG, QMO (INJECTION)
     Route: 058
     Dates: start: 20250109
  2. Symprove [Concomitant]
     Indication: Product used for unknown indication
     Route: 065

REACTIONS (5)
  - Infection [Not Recovered/Not Resolved]
  - Cough [Unknown]
  - Productive cough [Unknown]
  - Aphonia [Unknown]
  - Psoriasis [Unknown]

NARRATIVE: CASE EVENT DATE: 20250315
